FAERS Safety Report 14348879 (Version 1)
Quarter: 2018Q1

REPORT INFORMATION
  Report Type: Spontaneous
  Country: US (occurrence: US)
  Receive Date: 20180104
  Receipt Date: 20180104
  Transmission Date: 20180509
  Serious: No
  Sender: FDA-Public Use
  Company Number: US-TEVA-2017-US-831137

PATIENT
  Age: 3 Month
  Sex: Male

DRUGS (1)
  1. DICLOXACILLIN [Suspect]
     Active Substance: DICLOXACILLIN
     Route: 063

REACTIONS (4)
  - Frequent bowel movements [Unknown]
  - Exposure via breast milk [Unknown]
  - Irritability [Unknown]
  - Product formulation issue [Unknown]
